FAERS Safety Report 6983031-7 (Version None)
Quarter: 2010Q3

REPORT INFORMATION
  Report Type: 
  Country: None (occurrence: None)
  Receive Date: 20100914
  Receipt Date: 20100521
  Transmission Date: 20110219
  Serious: No
  Sender: FDA-Public Use
  Company Number: US-PFIZER INC-2010064999

PATIENT
  Sex: Female
  Weight: 58 kg

DRUGS (4)
  1. LYRICA [Suspect]
     Indication: NECK PAIN
     Dosage: 50 MG, 2X/DAY
     Route: 048
     Dates: start: 20100519
  2. LYRICA [Suspect]
     Indication: MUSCULOSKELETAL PAIN
  3. LYRICA [Suspect]
     Indication: BACK PAIN
  4. LYRICA [Suspect]
     Indication: FIBROMYALGIA

REACTIONS (3)
  - DIZZINESS [None]
  - FEELING ABNORMAL [None]
  - RASH [None]
